FAERS Safety Report 5442382-8 (Version None)
Quarter: 2007Q3

REPORT INFORMATION
  Report Type: 
  Country: None (occurrence: None)
  Receive Date: 20070904
  Receipt Date: 20070823
  Transmission Date: 20080115
  Serious: Yes (Hospitalization, Other)
  Sender: FDA-Public Use
  Company Number: JP-PFIZER INC-2007063449

PATIENT
  Age: 59 Year
  Sex: Female

DRUGS (7)
  1. ZOLOFT [Suspect]
     Dosage: DAILY DOSE:100MG
     Route: 048
     Dates: start: 20070719, end: 20070729
  2. ALOSENN [Concomitant]
  3. ROHYPNOL [Concomitant]
  4. ESTAZOLAM [Concomitant]
  5. AMOBAN [Concomitant]
  6. LENDORMIN [Concomitant]
  7. SEROQUEL [Concomitant]

REACTIONS (1)
  - SCHIZOPHRENIA [None]
